FAERS Safety Report 4769086-9 (Version None)
Quarter: 2005Q3

REPORT INFORMATION
  Report Type: 
  Country: None (occurrence: None)
  Receive Date: 20050912
  Receipt Date: 20041029
  Transmission Date: 20060218
  Serious: Yes (Life-Threatening, Hospitalization)
  Sender: FDA-Public Use
  Company Number: 2004-BP-10957BP

PATIENT
  Age: 30 Year
  Sex: Male
  Weight: 90.45 kg

DRUGS (3)
  1. VIRAMUNE [Suspect]
     Indication: HIV INFECTION
     Dosage: 200 MG (200 MG, 1 IN 1 D), PO
     Route: 048
     Dates: start: 20040929, end: 20041010
  2. VIREAD [Concomitant]
  3. VIDEX EC [Concomitant]

REACTIONS (2)
  - HEPATOTOXICITY [None]
  - JAUNDICE [None]
